FAERS Safety Report 22820029 (Version 3)
Quarter: 2023Q4

REPORT INFORMATION
  Report Type: Report from Study
  Country: US (occurrence: US)
  Receive Date: 20230814
  Receipt Date: 20231128
  Transmission Date: 20240110
  Serious: Yes (Death, Hospitalization, Other)
  Sender: FDA-Public Use
  Company Number: US-BRISTOL-MYERS SQUIBB COMPANY-2023-113992

PATIENT
  Age: 67 Year
  Sex: Male
  Weight: 105.69 kg

DRUGS (16)
  1. ELIQUIS [Suspect]
     Active Substance: APIXABAN
     Indication: Atrial fibrillation
     Route: 048
     Dates: start: 20230417
  2. ZYLOPRIM [Concomitant]
     Active Substance: ALLOPURINOL
     Indication: Product used for unknown indication
     Route: 048
  3. LIPITOR [Concomitant]
     Active Substance: ATORVASTATIN CALCIUM
     Indication: Product used for unknown indication
     Route: 048
  4. BETA CAROTENE [Concomitant]
     Active Substance: BETA CAROTENE
     Indication: Product used for unknown indication
     Route: 048
  5. COREG [Concomitant]
     Active Substance: CARVEDILOL
     Indication: Product used for unknown indication
     Route: 048
  6. PLAVIX [Concomitant]
     Active Substance: CLOPIDOGREL BISULFATE
     Indication: Product used for unknown indication
     Route: 048
  7. FARXIGA [Concomitant]
     Active Substance: DAPAGLIFLOZIN PROPANEDIOL
     Indication: Product used for unknown indication
     Route: 048
  8. LASIX [Concomitant]
     Active Substance: FUROSEMIDE
     Indication: Pulmonary oedema
     Route: 048
  9. PRINIVIL [Concomitant]
     Active Substance: LISINOPRIL
     Indication: Product used for unknown indication
     Route: 048
  10. IMDUR [Concomitant]
     Active Substance: ISOSORBIDE MONONITRATE
     Indication: Product used for unknown indication
     Route: 048
  11. PROTONIX [Concomitant]
     Active Substance: PANTOPRAZOLE SODIUM
     Indication: Product used for unknown indication
     Dosage: TAKE TWO TABLETS BY MOUTH ONCE DAILY, BUT PATIENT TAKING DIFFERENTLY TAKE ONE TABLET BY MOUTH DAILY
     Route: 048
  12. MINERALS\VITAMINS [Concomitant]
     Active Substance: MINERALS\VITAMINS
     Indication: Product used for unknown indication
     Route: 048
  13. PROSIGHT [Concomitant]
     Indication: Product used for unknown indication
     Dosage: 5000-60-30 UNIT-MG-UNIT-TAB
     Route: 048
  14. CHRONULAC [Concomitant]
     Active Substance: LACTULOSE
     Indication: Product used for unknown indication
     Route: 048
  15. CORGARD [Concomitant]
     Active Substance: NADOLOL
     Indication: Product used for unknown indication
  16. XIFAXAN [Concomitant]
     Active Substance: RIFAXIMIN
     Indication: Cerebral disorder
     Route: 048

REACTIONS (9)
  - Rectal haemorrhage [Fatal]
  - Pulmonary hypertension [Unknown]
  - Left ventricular failure [Unknown]
  - Peripheral vascular disorder [Unknown]
  - Mitral valve calcification [Unknown]
  - Chronic kidney disease [Unknown]
  - Cardiac arrest [Fatal]
  - Renal failure [Fatal]
  - Liver disorder [Fatal]
